FAERS Safety Report 18826485 (Version 3)
Quarter: 2021Q1

REPORT INFORMATION
  Report Type: Report from Study
  Country: US (occurrence: US)
  Receive Date: 20210202
  Receipt Date: 20210217
  Transmission Date: 20210419
  Serious: Yes (Other)
  Sender: FDA-Public Use
  Company Number: US-TEVA-2021-US-1874381

PATIENT
  Age: 38 Year
  Sex: Female

DRUGS (3)
  1. CLARAVIS [Suspect]
     Active Substance: ISOTRETINOIN
     Dosage: AVERAGE DAILY DOSE: 60MG
     Route: 065
     Dates: start: 20201125, end: 20210120
  2. CLARAVIS [Suspect]
     Active Substance: ISOTRETINOIN
     Route: 065
     Dates: start: 2019, end: 2020
  3. CLARAVIS [Suspect]
     Active Substance: ISOTRETINOIN
     Dosage: 8.5714 MILLIGRAM DAILY; 20MG, TID
     Route: 065
     Dates: start: 20201125, end: 20210122

REACTIONS (1)
  - Unintended pregnancy [Unknown]
